FAERS Safety Report 17815360 (Version 2)
Quarter: 2020Q2

REPORT INFORMATION
  Report Type: Spontaneous
  Country: ES (occurrence: ES)
  Receive Date: 20200522
  Receipt Date: 20200622
  Transmission Date: 20200714
  Serious: Yes (Hospitalization)
  Sender: FDA-Public Use
  Company Number: ES-ELI_LILLY_AND_COMPANY-ES202005004647

PATIENT
  Sex: Female

DRUGS (3)
  1. ORFIDAL [Concomitant]
     Active Substance: LORAZEPAM
     Indication: PRODUCT USED FOR UNKNOWN INDICATION
  2. FORSTEO 250UG/ML [Suspect]
     Active Substance: TERIPARATIDE
     Indication: OSTEOPOROSIS
     Dosage: UNK UNK, UNKNOWN
     Route: 065
     Dates: start: 201907
  3. IRON [Concomitant]
     Active Substance: IRON
     Indication: ONCOLOGIC COMPLICATION

REACTIONS (3)
  - Hypophagia [Recovering/Resolving]
  - B-cell lymphoma stage III [Unknown]
  - Asthenia [Unknown]
